FAERS Safety Report 6405687-X (Version None)
Quarter: 2009Q4

REPORT INFORMATION
  Report Type: 
  Country: None (occurrence: None)
  Receive Date: 20091014
  Receipt Date: 20081125
  Transmission Date: 20100525
  Serious: Yes (Other)
  Sender: FDA-Public Use
  Company Number: DSA_32748_2008

PATIENT
  Age: 70 Year
  Sex: Male

DRUGS (1)
  1. LORAZEPAM [Suspect]
     Indication: AGITATION
     Dosage: (0.5 MG, FREQUENCY UNKNOWN)

REACTIONS (3)
  - ACUTE RESPIRATORY FAILURE [None]
  - DIAPHRAGMATIC PARALYSIS [None]
  - DISEASE COMPLICATION [None]
